FAERS Safety Report 9656624 (Version 7)
Quarter: 2015Q1

REPORT INFORMATION
  Report Type: Spontaneous
  Country: US (occurrence: US)
  Receive Date: 20131030
  Receipt Date: 20150127
  Transmission Date: 20150721
  Serious: Yes (Death, Other)
  Sender: FDA-Public Use
  Company Number: US-ASTELLAS-2013US011132

PATIENT
  Sex: Male

DRUGS (3)
  1. INSULIN [Concomitant]
     Active Substance: INSULIN NOS
     Indication: DIABETES MELLITUS
     Dosage: UNK UNK, UNKNOWN FREQ.
     Route: 058
  2. XTANDI [Suspect]
     Active Substance: ENZALUTAMIDE
     Indication: PROSTATE CANCER METASTATIC
  3. XTANDI [Suspect]
     Active Substance: ENZALUTAMIDE
     Indication: BLADDER CANCER
     Route: 048
     Dates: start: 20130909, end: 20131226

REACTIONS (6)
  - Weight decreased [Unknown]
  - Malignant neoplasm progression [Fatal]
  - Blood glucose decreased [Unknown]
  - Fatigue [Unknown]
  - Decreased appetite [Unknown]
  - Product use issue [Unknown]
